FAERS Safety Report 5158310-9 (Version None)
Quarter: 2006Q4

REPORT INFORMATION
  Report Type: 
  Country: None (occurrence: None)
  Receive Date: 20061128
  Receipt Date: 20060925
  Transmission Date: 20070319
  Serious: Yes (Other)
  Sender: FDA-Public Use
  Company Number: US-JNJFOC-20060906069

PATIENT
  Sex: Female
  Weight: 127.01 kg

DRUGS (2)
  1. DURAGESIC-100 [Suspect]
     Indication: BACK PAIN
     Dosage: 100 MCG AND 50 MCG PATCHES TOGETHER
     Route: 062
  2. COUMADIN [Concomitant]
     Route: 048

REACTIONS (5)
  - BLADDER DISORDER [None]
  - GLAUCOMA [None]
  - RESTLESS LEGS SYNDROME [None]
  - SINUSITIS [None]
  - WEIGHT DECREASED [None]
